FAERS Safety Report 5029341-4 (Version None)
Quarter: 2006Q2

REPORT INFORMATION
  Report Type: 
  Country: None (occurrence: None)
  Receive Date: 20060614
  Receipt Date: 20060526
  Transmission Date: 20061013
  Serious: Yes (Hospitalization)
  Sender: FDA-Public Use
  Company Number: US200605006328

PATIENT
  Age: 2 Year
  Sex: Male

DRUGS (3)
  1. HUMATROPE [Suspect]
     Indication: GROWTH HORMONE DEFICIENCY
     Dosage: 10 UNK, UNK, SUBCUTANEOUS
     Route: 058
     Dates: start: 20050101
  2. ADVAIR DISKUS 100/50 [Concomitant]
  3. FLOVENT [Concomitant]

REACTIONS (6)
  - ASTHMA [None]
  - DEHYDRATION [None]
  - DRUG ADMINISTERED AT INAPPROPRIATE SITE [None]
  - INJECTION SITE BRUISING [None]
  - MEDICAL DEVICE COMPLICATION [None]
  - PHARMACEUTICAL PRODUCT COMPLAINT [None]
